FAERS Safety Report 9299568 (Version 2)
Quarter: 2014Q1

REPORT INFORMATION
  Report Type: Spontaneous
  Country: US (occurrence: US)
  Receive Date: 20130521
  Receipt Date: 20140321
  Transmission Date: 20141002
  Serious: No
  Sender: FDA-Public Use
  Company Number: US-BIOGENIDEC-2013BI023236

PATIENT
  Age: 52 Year
  Sex: Female

DRUGS (3)
  1. AVONEX [Suspect]
     Indication: MULTIPLE SCLEROSIS
     Route: 030
     Dates: start: 20030520
  2. AVONEX [Suspect]
     Indication: MULTIPLE SCLEROSIS
     Route: 030
     Dates: end: 20130101
  3. AVONEX [Suspect]
     Indication: MULTIPLE SCLEROSIS
     Route: 030
     Dates: start: 20130108

REACTIONS (5)
  - Injection site warmth [Not Recovered/Not Resolved]
  - Gait disturbance [Recovered/Resolved]
  - Vision blurred [Not Recovered/Not Resolved]
  - Injection site erythema [Unknown]
  - Injection site pain [Not Recovered/Not Resolved]
